FAERS Safety Report 18363222 (Version 4)
Quarter: 2020Q4

REPORT INFORMATION
  Report Type: Spontaneous
  Country: US (occurrence: US)
  Receive Date: 20201008
  Receipt Date: 20201028
  Transmission Date: 20210114
  Serious: Yes (Hospitalization)
  Sender: FDA-Public Use
  Company Number: US-SEATTLE GENETICS-2020SGN03975

PATIENT
  Sex: Female

DRUGS (2)
  1. XELODA [Suspect]
     Active Substance: CAPECITABINE
     Indication: BREAST CANCER FEMALE
  2. TUKYSA [Suspect]
     Active Substance: TUCATINIB
     Indication: BREAST CANCER FEMALE

REACTIONS (11)
  - Hospitalisation [Unknown]
  - Neuralgia [Unknown]
  - Vertebral column mass [Unknown]
  - Thrombosis [Unknown]
  - Fatigue [Unknown]
  - Haemoptysis [Unknown]
  - Radiotherapy [Unknown]
  - Disease progression [Unknown]
  - Bone pain [Unknown]
  - Arthralgia [Unknown]
  - Nausea [Unknown]
